FAERS Safety Report 13222322 (Version 2)
Quarter: 2017Q1

REPORT INFORMATION
  Report Type: Other
  Country: US (occurrence: US)
  Receive Date: 20170211
  Receipt Date: 20170211
  Transmission Date: 20170428
  Serious: No
  Sender: FDA-Public Use
  Company Number: US-ACORDA-ACO_132556_2017

PATIENT
  Sex: Female
  Weight: 83.9 kg

DRUGS (5)
  1. DETROL [Concomitant]
     Active Substance: TOLTERODINE TARTRATE
     Indication: PRODUCT USED FOR UNKNOWN INDICATION
     Dosage: UNK
     Route: 065
  2. SERTRALINE [Concomitant]
     Active Substance: SERTRALINE HYDROCHLORIDE
     Indication: PRODUCT USED FOR UNKNOWN INDICATION
     Dosage: UNK
     Route: 065
  3. AMPYRA [Suspect]
     Active Substance: DALFAMPRIDINE
     Indication: GAIT DISTURBANCE
     Dosage: 10 MG, BID
     Route: 048
     Dates: start: 20161206
  4. REBIF [Concomitant]
     Active Substance: INTERFERON BETA-1A
     Indication: PRODUCT USED FOR UNKNOWN INDICATION
     Dosage: UNK
     Route: 065
  5. CLONAZEPAM. [Concomitant]
     Active Substance: CLONAZEPAM
     Indication: PRODUCT USED FOR UNKNOWN INDICATION
     Dosage: UNK
     Route: 065

REACTIONS (9)
  - Eye pruritus [Not Recovered/Not Resolved]
  - Inappropriate schedule of drug administration [Unknown]
  - Headache [Recovering/Resolving]
  - Asthenia [Not Recovered/Not Resolved]
  - Pruritus [Not Recovered/Not Resolved]
  - Nausea [Not Recovered/Not Resolved]
  - Balance disorder [Not Recovered/Not Resolved]
  - Paraesthesia [Not Recovered/Not Resolved]
  - Lacrimation increased [Not Recovered/Not Resolved]
